FAERS Safety Report 5140882-1 (Version None)
Quarter: 2006Q4

REPORT INFORMATION
  Report Type: 
  Country: None (occurrence: None)
  Receive Date: 20060901
  Receipt Date: 20060731
  Transmission Date: 20070319
  Serious: Yes (Hospitalization)
  Sender: FDA-Public Use
  Company Number: 146840USA

PATIENT
  Age: 57 Year
  Sex: Female
  Weight: 68.0396 kg

DRUGS (2)
  1. AZITHROMYCIN [Suspect]
     Indication: INFECTION PROPHYLAXIS
     Dosage: 250 MILLIGRAM QD ORAL
     Route: 048
     Dates: start: 20060723, end: 20060725
  2. ATENOLOL [Concomitant]

REACTIONS (1)
  - CONSTIPATION [None]
